FAERS Safety Report 16350377 (Version 1)
Quarter: 2019Q2

REPORT INFORMATION
  Report Type: Spontaneous
  Country: AR (occurrence: AR)
  Receive Date: 20190524
  Receipt Date: 20190524
  Transmission Date: 20190711
  Serious: Yes (Other)
  Sender: FDA-Public Use
  Company Number: AR-AMGEN-ARGSP2019069046

PATIENT
  Age: 37 Year
  Sex: Female

DRUGS (2)
  1. DASATINIB. [Concomitant]
     Active Substance: DASATINIB
     Dosage: UNK
  2. BLINCYTO [Suspect]
     Active Substance: BLINATUMOMAB
     Indication: PRECURSOR B-LYMPHOBLASTIC LYMPHOMA RECURRENT
     Dosage: 9 MICROGRAM, QD
     Route: 042

REACTIONS (6)
  - Capillary leak syndrome [Unknown]
  - Neutropenia [Unknown]
  - Pyrexia [Unknown]
  - Cytokine release syndrome [Unknown]
  - Cholecystitis [Unknown]
  - Fluid overload [Unknown]
